FAERS Safety Report 10684135 (Version 1)
Quarter: 2014Q4

REPORT INFORMATION
  Report Type: Spontaneous
  Country: GB (occurrence: GB)
  Receive Date: 20141231
  Receipt Date: 20141231
  Transmission Date: 20150529
  Serious: Yes (Hospitalization, Disabling, Other)
  Sender: FDA-Public Use
  Company Number: GB-AUROBINDO-AUR-APL-2014-13336

PATIENT
  Age: 48 Year
  Sex: Female
  Weight: 64 kg

DRUGS (2)
  1. TOPIRAMATE 25MG [Suspect]
     Active Substance: TOPIRAMATE
     Indication: MIGRAINE
     Dosage: 25 MG, ONCE A DAY
     Route: 048
     Dates: start: 20141001
  2. TOPIRAMATE 25MG [Suspect]
     Active Substance: TOPIRAMATE
     Dosage: 75 MG, DAILY
     Route: 048
     Dates: end: 20141105

REACTIONS (6)
  - Abasia [Unknown]
  - Malaise [Unknown]
  - Constipation [Unknown]
  - Confusional state [Recovered/Resolved]
  - Pain [Unknown]
  - Anal fissure [Not Recovered/Not Resolved]

NARRATIVE: CASE EVENT DATE: 20141007
